FAERS Safety Report 7151432-2 (Version None)
Quarter: 2010Q4

REPORT INFORMATION
  Report Type: 
  Country: None (occurrence: None)
  Receive Date: 20101210
  Receipt Date: 20101206
  Transmission Date: 20110411
  Serious: Yes (Death, Life-Threatening, Hospitalization, Other)
  Sender: FDA-Public Use
  Company Number: SA-ROXANE LABORATORIES, INC.-2010-RO-01580RO

PATIENT
  Age: 35 Year
  Sex: Male

DRUGS (14)
  1. AZATHIOPRINE [Suspect]
     Indication: CROHN'S DISEASE
     Dosage: 100 MG
     Route: 048
  2. PREDNISONE [Suspect]
     Indication: CROHN'S DISEASE
     Route: 048
  3. PREDNISONE [Suspect]
     Indication: HODGKIN'S DISEASE NODULAR SCLEROSIS STAGE UNSPECIFIED
  4. MESALAMINE [Suspect]
     Indication: CROHN'S DISEASE
     Dosage: 3 G
     Route: 048
  5. REMICADE [Suspect]
     Indication: CROHN'S DISEASE
     Route: 042
     Dates: start: 20040901, end: 20070601
  6. DIPHENHYDRAMINE [Suspect]
     Indication: PREMEDICATION
     Route: 042
     Dates: start: 20040901, end: 20070601
  7. HYDROCORTISONE [Suspect]
     Indication: PREMEDICATION
     Route: 042
     Dates: start: 20040901, end: 20070601
  8. ADRIAMYCIN PFS [Suspect]
     Indication: HODGKIN'S DISEASE NODULAR SCLEROSIS STAGE UNSPECIFIED
  9. BLEOMYCIN SULFATE [Suspect]
     Indication: HODGKIN'S DISEASE NODULAR SCLEROSIS STAGE UNSPECIFIED
  10. VINCRISTINE [Suspect]
     Indication: HODGKIN'S DISEASE NODULAR SCLEROSIS STAGE UNSPECIFIED
  11. ETOPOSIDE [Suspect]
     Indication: HODGKIN'S DISEASE NODULAR SCLEROSIS STAGE UNSPECIFIED
  12. METHYLPREDNISOLONE [Suspect]
     Indication: HODGKIN'S DISEASE NODULAR SCLEROSIS STAGE UNSPECIFIED
  13. CYTARABINE [Suspect]
     Indication: HODGKIN'S DISEASE NODULAR SCLEROSIS STAGE UNSPECIFIED
  14. CISPLATIN [Suspect]
     Indication: HODGKIN'S DISEASE NODULAR SCLEROSIS STAGE UNSPECIFIED

REACTIONS (10)
  - CYTOMEGALOVIRUS COLITIS [None]
  - DEATH [None]
  - DRUG INEFFECTIVE [None]
  - EPSTEIN-BARR VIRUS TEST POSITIVE [None]
  - ESCHERICHIA SEPSIS [None]
  - HODGKIN'S DISEASE NODULAR SCLEROSIS STAGE UNSPECIFIED [None]
  - LOBAR PNEUMONIA [None]
  - METASTASES TO BONE [None]
  - MULTI-ORGAN FAILURE [None]
  - SEPTIC SHOCK [None]
